FAERS Safety Report 5263263-9 (Version None)
Quarter: 2007Q1

REPORT INFORMATION
  Report Type: 
  Country: None (occurrence: None)
  Receive Date: 20070312
  Receipt Date: 20070226
  Transmission Date: 20070707
  Serious: Yes (Other)
  Sender: FDA-Public Use
  Company Number: JP-ELI_LILLY_AND_COMPANY-JP200612000972

PATIENT
  Age: 67 Year
  Sex: Female
  Weight: 72 kg

DRUGS (6)
  1. EVISTA [Suspect]
     Indication: OSTEOPOROSIS POSTMENOPAUSAL
     Dosage: 60 MG, DAILY (1/D)
     Route: 048
     Dates: end: 20061204
  2. ALCENOL [Concomitant]
     Dosage: 50 MG, DAILY (1/D)
     Route: 048
  3. DIOVAN [Concomitant]
     Indication: HYPERTENSION
     Dosage: 80 MG, DAILY (1/D)
     Route: 048
  4. BEZATATE [Concomitant]
     Indication: HYPERTENSION
     Dosage: 200 MG, 2/D
     Route: 048
  5. CEPHADOL [Concomitant]
     Dosage: 25 MG, 3/D
     Route: 048
  6. KERLONG [Concomitant]
     Indication: HYPERTENSION
     Dosage: 10 MG, DAILY (1/D)
     Route: 048

REACTIONS (1)
  - UTERINE CANCER [None]
